FAERS Safety Report 18309429 (Version 1)
Quarter: 2020Q3

REPORT INFORMATION
  Report Type: Spontaneous
  Country: GB (occurrence: GB)
  Receive Date: 20200925
  Receipt Date: 20200925
  Transmission Date: 20201103
  Serious: Yes (Hospitalization)
  Sender: FDA-Public Use
  Company Number: GB-SUN PHARMACEUTICAL INDUSTRIES LTD-2020RR-262065

PATIENT
  Age: 67 Year
  Sex: Female
  Weight: 60.32 kg

DRUGS (3)
  1. CODEINE [Suspect]
     Active Substance: CODEINE
     Indication: BACK PAIN
     Dosage: 30 MILLIGRAM, UNK
     Route: 048
     Dates: start: 20200824, end: 20200826
  2. VENTOLIN [Concomitant]
     Active Substance: ALBUTEROL SULFATE
     Indication: ASTHMA
     Dosage: ()
     Route: 065
  3. FOSTAIR [Concomitant]
     Active Substance: BECLOMETHASONE\FORMOTEROL
     Indication: ASTHMA
     Dosage: ()
     Route: 065

REACTIONS (6)
  - Contraindicated product prescribed [Unknown]
  - Nausea [Recovering/Resolving]
  - Rash pruritic [Recovering/Resolving]
  - Dizziness [Recovering/Resolving]
  - Depression [Recovering/Resolving]
  - Palpitations [Recovering/Resolving]

NARRATIVE: CASE EVENT DATE: 20200825
